FAERS Safety Report 16118669 (Version 1)
Quarter: 2019Q1

REPORT INFORMATION
  Report Type: Spontaneous
  Country: CA (occurrence: CA)
  Receive Date: 20190326
  Receipt Date: 20190326
  Transmission Date: 20190418
  Serious: Yes (Disabling)
  Sender: FDA-Public Use
  Company Number: CA-JNJFOC-20190329011

PATIENT
  Age: 35 Year
  Sex: Female
  Weight: 53.52 kg

DRUGS (2)
  1. INVEGA SUSTENNA [Suspect]
     Active Substance: PALIPERIDONE PALMITATE
     Indication: BIPOLAR DISORDER
     Route: 030
  2. RISPERDAL [Concomitant]
     Active Substance: RISPERIDONE
     Route: 048

REACTIONS (4)
  - Off label use [Unknown]
  - Asthenopia [Unknown]
  - Myopia [Unknown]
  - Product use in unapproved indication [Unknown]
